FAERS Safety Report 20013018 (Version 3)
Quarter: 2022Q1

REPORT INFORMATION
  Report Type: Report from Study
  Country: SG (occurrence: SG)
  Receive Date: 20211029
  Receipt Date: 20220216
  Transmission Date: 20220423
  Serious: Yes (Hospitalization)
  Sender: FDA-Public Use
  Company Number: SG-KARYOPHARM-2021KPT001323

PATIENT
  Age: 63 Year
  Sex: Female

DRUGS (6)
  1. SELINEXOR [Suspect]
     Active Substance: SELINEXOR
     Indication: Malignant melanoma
     Dosage: 40 MG, WEEKLY (FOR THREE WEEKS ON AND ONE WEEK OFF)
     Route: 048
     Dates: start: 20210705, end: 20211025
  2. TALAZOPARIB [Suspect]
     Active Substance: TALAZOPARIB
     Indication: Malignant melanoma
     Dosage: 0.25 MG, QD
     Route: 048
     Dates: start: 20210705, end: 20211025
  3. FENTANYL [Concomitant]
     Active Substance: FENTANYL
     Dosage: 25 UG/H
     Route: 062
  4. MORPHINE [Concomitant]
     Active Substance: MORPHINE
     Dosage: 7.5 MG, Q4H PRN
  5. PREGABALIN [Concomitant]
     Active Substance: PREGABALIN
     Dosage: 75 MG, BID
  6. LACTULOSE [Concomitant]
     Active Substance: LACTULOSE
     Dosage: 10 ML, TID PRN

REACTIONS (1)
  - Anaemia [Recovered/Resolved]

NARRATIVE: CASE EVENT DATE: 20211014
